FAERS Safety Report 12108567 (Version 1)
Quarter: 2016Q1

REPORT INFORMATION
  Report Type: Report from Study
  Country: DE (occurrence: DE)
  Receive Date: 20160224
  Receipt Date: 20160224
  Transmission Date: 20160526
  Serious: Yes (Other)
  Sender: FDA-Public Use
  Company Number: DE-BRISTOL-MYERS SQUIBB COMPANY-BMS-2016-011194

PATIENT
  Age: 65 Year
  Sex: Male
  Weight: 76.6 kg

DRUGS (12)
  1. DASATINIB [Suspect]
     Active Substance: DASATINIB
     Indication: ACUTE MYELOID LEUKAEMIA
     Dosage: 100 MG, UNK
     Route: 065
     Dates: start: 20160120
  2. EXTERNAL-PANTOPRAZOLE [Suspect]
     Active Substance: PANTOPRAZOLE SODIUM
     Indication: PROPHYLAXIS
     Dosage: 40 MG, QD
     Route: 048
     Dates: start: 20160112
  3. EXTERNAL-METOPROLOL SUCCINATE [Suspect]
     Active Substance: METOPROLOL SUCCINATE
     Indication: TROPONIN INCREASED
     Dosage: 47.5 MG, BID
     Route: 048
     Dates: start: 20160120
  4. ALLOPURINOL. [Concomitant]
     Active Substance: ALLOPURINOL
     Indication: BLOOD URIC ACID
     Dosage: 300 MG, BID
     Route: 048
     Dates: start: 20160127, end: 20160128
  5. CYTARABINE. [Suspect]
     Active Substance: CYTARABINE
     Indication: CHRONIC MYELOID LEUKAEMIA
     Dosage: 400 MG, UNK
     Route: 065
     Dates: start: 20160112
  6. EXTERNAL-SIMVASTATIN [Suspect]
     Active Substance: SIMVASTATIN
     Indication: TROPONIN INCREASED
     Dosage: 20 MG, QD
     Route: 048
     Dates: start: 20160107
  7. TAZOBAC [Concomitant]
     Active Substance: PIPERACILLIN SODIUM\TAZOBACTAM SODIUM
     Indication: C-REACTIVE PROTEIN INCREASED
     Dosage: 0.5 G, TID
     Route: 042
     Dates: start: 20160107, end: 20160120
  8. EXTERNAL-RAMIPRIL [Suspect]
     Active Substance: RAMIPRIL
     Indication: TROPONIN INCREASED
     Dosage: 2.5 MG, QD
     Route: 048
     Dates: start: 20160107
  9. MOVICOL [Concomitant]
     Active Substance: POLYETHYLENE GLYCOL 3350\POTASSIUM CHLORIDE\SODIUM BICARBONATE\SODIUM CHLORIDE
     Indication: CONSTIPATION
     Dosage: 1 DF, BID
     Route: 048
     Dates: start: 20160117, end: 20160127
  10. DAUNORUBICIN [Suspect]
     Active Substance: DAUNORUBICIN
     Indication: CHRONIC MYELOID LEUKAEMIA
     Dosage: 120 MG, UNK
     Route: 065
     Dates: start: 20160112
  11. CIPROFLOXACIN. [Suspect]
     Active Substance: CIPROFLOXACIN
     Indication: NEUTROPENIA
     Dosage: 500 MG, BID
     Route: 042
     Dates: start: 20160121
  12. CLEXANE [Concomitant]
     Active Substance: ENOXAPARIN SODIUM
     Indication: THROMBOSIS
     Dosage: 0.6 ML, BID
     Route: 058
     Dates: start: 20160206

REACTIONS (2)
  - Purpura [Recovered/Resolved]
  - Hepatic enzyme increased [Not Recovered/Not Resolved]

NARRATIVE: CASE EVENT DATE: 20160127
